FAERS Safety Report 16224746 (Version 4)
Quarter: 2019Q2

REPORT INFORMATION
  Report Type: Report from Study
  Country: US (occurrence: US)
  Receive Date: 20190422
  Receipt Date: 20190607
  Transmission Date: 20190711
  Serious: No
  Sender: FDA-Public Use
  Company Number: US-ALEXION PHARMACEUTICALS INC.-A201905420

PATIENT
  Sex: Female

DRUGS (1)
  1. STRENSIQ [Suspect]
     Active Substance: ASFOTASE ALFA
     Indication: HYPOPHOSPHATASIA
     Dosage: UNK
     Route: 065

REACTIONS (9)
  - Injection site discolouration [Not Recovered/Not Resolved]
  - Rib deformity [Unknown]
  - Pain in extremity [Unknown]
  - Foot fracture [Not Recovered/Not Resolved]
  - Back pain [Unknown]
  - Synovial cyst [Unknown]
  - Back disorder [Unknown]
  - Musculoskeletal pain [Unknown]
  - Bone density abnormal [Unknown]

NARRATIVE: CASE EVENT DATE: 2017
